FAERS Safety Report 17846904 (Version 1)
Quarter: 2020Q2

REPORT INFORMATION
  Report Type: Spontaneous
  Country: US (occurrence: US)
  Receive Date: 20200601
  Receipt Date: 20200601
  Transmission Date: 20200714
  Serious: No
  Sender: FDA-Public Use
  Company Number: None

PATIENT
  Age: 87 Year
  Sex: Female
  Weight: 49.01 kg

DRUGS (3)
  1. ALLOPURINOL. [Concomitant]
     Active Substance: ALLOPURINOL
  2. DECITABINE. [Concomitant]
     Active Substance: DECITABINE
  3. POSACONAZOLE [Suspect]
     Active Substance: POSACONAZOLE
     Indication: LEUKAEMIA
     Route: 048
     Dates: start: 20191113, end: 20200601

REACTIONS (1)
  - Death [None]

NARRATIVE: CASE EVENT DATE: 20200601
